FAERS Safety Report 16841647 (Version 1)
Quarter: 2019Q3

REPORT INFORMATION
  Report Type: Spontaneous
  Country: US (occurrence: US)
  Receive Date: 20190923
  Receipt Date: 20190923
  Transmission Date: 20191005
  Serious: No
  Sender: FDA-Public Use
  Company Number: US-ASSERTIO THERAPEUTICS, INC.-US-2019DEP000075

PATIENT
  Age: 62 Year
  Sex: Male

DRUGS (1)
  1. GRALISE [Suspect]
     Active Substance: GABAPENTIN
     Indication: NEUROPATHY PERIPHERAL
     Dosage: 1800 MG, QD WITH EVENING MEAL
     Route: 048
     Dates: start: 20180521

REACTIONS (2)
  - Product use in unapproved indication [Unknown]
  - Pain management [Unknown]

NARRATIVE: CASE EVENT DATE: 20180521
